FAERS Safety Report 4351098-0 (Version None)
Quarter: 2004Q2

REPORT INFORMATION
  Report Type: 
  Country: None (occurrence: None)
  Receive Date: 20040428
  Receipt Date: 20031222
  Transmission Date: 20050107
  Serious: Yes (Death)
  Sender: FDA-Public Use
  Company Number: US-JNJFOC-20030903093

PATIENT
  Age: 34 Year
  Sex: Male
  Weight: 104.3273 kg

DRUGS (6)
  1. ULTRAM [Suspect]
     Indication: BACK PAIN
     Dosage: 2 TABLETS Q 6 HOURS
  2. ETODOLAC [Concomitant]
  3. FLEXERIL (CYCLOBENZAPRIN HYDROCHLORIDE) [Concomitant]
  4. ZOLOFT [Concomitant]
  5. METHADONE (METHADONE) [Concomitant]
  6. HYDROCODONE (HYDROCODONE) [Concomitant]

REACTIONS (1)
  - DEATH [None]
